FAERS Safety Report 12190127 (Version 1)
Quarter: 2016Q1

REPORT INFORMATION
  Report Type: Other
  Country: CA (occurrence: CA)
  Receive Date: 20160318
  Receipt Date: 20160318
  Transmission Date: 20160526
  Serious: Yes (Other)
  Sender: FDA-Public Use
  Company Number: CA-SHIRE-CA201603144

PATIENT
  Age: 69 Year
  Sex: Male

DRUGS (5)
  1. VITAMIN D [Concomitant]
     Active Substance: CHOLECALCIFEROL
     Indication: PRODUCT USED FOR UNKNOWN INDICATION
     Dosage: 5000 IU, DAILY/WEDNESDAYS 5000 IU
     Route: 065
  2. REVESTIVE [Suspect]
     Active Substance: TEDUGLUTIDE
     Indication: SHORT-BOWEL SYNDROME
     Dosage: 3.72 MG, 1X/DAY:QD
     Route: 058
     Dates: start: 20160301
  3. LIPIDS NOS W/PROTEINS NOS/VITAMINS NOS [Concomitant]
     Active Substance: AMINO ACIDS\SOYBEAN OIL\VITAMINS
     Indication: PRODUCT USED FOR UNKNOWN INDICATION
     Dosage: 2000 ML, OVER 8-9 HOURS 5 DAYS/WEEK WITH IV 2/3 1/3 1000ML ON TUESDAY AND SATURDAY
     Route: 042
  4. MULTIVITAMIN                       /07504101/ [Concomitant]
     Active Substance: VITAMINS
     Indication: PRODUCT USED FOR UNKNOWN INDICATION
     Dosage: UNK, IN TPN AND ONCE DAILY
  5. CALCIUM CITRATE [Concomitant]
     Active Substance: CALCIUM CITRATE
     Indication: PRODUCT USED FOR UNKNOWN INDICATION
     Dosage: UNK, 2X/DAY:BID
     Route: 065

REACTIONS (5)
  - Initial insomnia [Recovered/Resolved]
  - Palpitations [Recovered/Resolved]
  - Faeces discoloured [Unknown]
  - Alcohol poisoning [Recovered/Resolved]
  - Faecal volume decreased [Unknown]

NARRATIVE: CASE EVENT DATE: 2016
